FAERS Safety Report 7270008-X (Version None)
Quarter: 2011Q1

REPORT INFORMATION
  Report Type: 
  Country: None (occurrence: None)
  Receive Date: 20110202
  Receipt Date: 20110124
  Transmission Date: 20110831
  Serious: Yes (Hospitalization)
  Sender: FDA-Public Use
  Company Number: JP-ROCHE-756131

PATIENT
  Sex: Male

DRUGS (21)
  1. TOCILIZUMAB [Suspect]
     Route: 041
     Dates: start: 20090507, end: 20090507
  2. TOCILIZUMAB [Suspect]
     Route: 041
     Dates: start: 20090311, end: 20090311
  3. PREDONINE [Suspect]
     Indication: RHEUMATOID ARTHRITIS
     Route: 048
     Dates: end: 20090310
  4. TOCILIZUMAB [Suspect]
     Route: 041
     Dates: start: 20090701, end: 20090701
  5. HYPEN [Concomitant]
     Route: 048
  6. PREDONINE [Suspect]
     Route: 048
     Dates: start: 20090311
  7. TOCILIZUMAB [Suspect]
     Route: 041
     Dates: start: 20101208, end: 20101208
  8. HALCION [Concomitant]
     Dosage: AS NEEDED 0.25 MG A DAY
     Route: 048
  9. TOCILIZUMAB [Suspect]
     Route: 041
     Dates: start: 20090408, end: 20090408
  10. TOCILIZUMAB [Suspect]
     Route: 041
     Dates: start: 20100818, end: 20100818
  11. TOCILIZUMAB [Suspect]
     Route: 041
     Dates: start: 20101110, end: 20101110
  12. TOCILIZUMAB [Suspect]
     Route: 041
     Dates: start: 20110105, end: 20110105
  13. TOCILIZUMAB [Suspect]
     Indication: RHEUMATOID ARTHRITIS
     Route: 041
     Dates: start: 20090114, end: 20090114
  14. TOCILIZUMAB [Suspect]
     Route: 041
     Dates: start: 20090603, end: 20090603
  15. TOCILIZUMAB [Suspect]
     Route: 041
     Dates: start: 20100721, end: 20100721
  16. TOCILIZUMAB [Suspect]
     Route: 041
     Dates: start: 20101013, end: 20101013
  17. CYTOTEC [Concomitant]
     Route: 048
  18. BONALON [Concomitant]
     Route: 048
  19. VOLTAREN [Concomitant]
     Route: 054
  20. TOCILIZUMAB [Suspect]
     Route: 041
     Dates: start: 20090212, end: 20090212
  21. TOCILIZUMAB [Suspect]
     Route: 041
     Dates: start: 20100915, end: 20100915

REACTIONS (4)
  - ECZEMA [None]
  - ARTHRITIS [None]
  - ANGINA PECTORIS [None]
  - BLOOD CHOLESTEROL INCREASED [None]
